FAERS Safety Report 9699293 (Version 1)
Quarter: 2013Q4

REPORT INFORMATION
  Report Type: Spontaneous
  Country: US (occurrence: US)
  Receive Date: 20131120
  Receipt Date: 20131120
  Transmission Date: 20140711
  Serious: No
  Sender: FDA-Public Use
  Company Number: US-GILEAD-2008-0015482

PATIENT
  Age: 48 Year
  Sex: Female
  Weight: 78.02 kg

DRUGS (10)
  1. LETAIRIS [Suspect]
     Indication: PULMONARY ARTERIAL HYPERTENSION
     Route: 048
     Dates: start: 20071028
  2. REVATIO [Concomitant]
     Indication: PULMONARY ARTERIAL HYPERTENSION
     Route: 048
  3. ALDACTONE [Concomitant]
     Indication: ESSENTIAL HYPERTENSION
     Route: 048
  4. FOSAMAX [Concomitant]
     Indication: OSTEOPOROSIS
     Route: 048
  5. COUMADIN [Concomitant]
     Indication: ANTICOAGULANT THERAPY
     Route: 048
  6. SENNA [Concomitant]
     Indication: LAXATIVE SUPPORTIVE CARE
  7. CELEXA [Concomitant]
     Indication: DEPRESSION
     Route: 048
  8. BUMETANIDE [Concomitant]
     Indication: FLUID RETENTION
     Route: 048
  9. PREDNISONE [Concomitant]
     Indication: ASTHMA
     Route: 048
  10. METFORMIN [Concomitant]
     Indication: TYPE 2 DIABETES MELLITUS
     Route: 048

REACTIONS (2)
  - Headache [Not Recovered/Not Resolved]
  - Nasal congestion [Not Recovered/Not Resolved]
